FAERS Safety Report 4848717-9 (Version None)
Quarter: 2005Q4

REPORT INFORMATION
  Report Type: 
  Country: None (occurrence: None)
  Receive Date: 20051208
  Receipt Date: 20051108
  Transmission Date: 20060501
  Serious: Yes (Hospitalization)
  Sender: FDA-Public Use
  Company Number: US-BRISTOL-MYERS SQUIBB COMPANY-13172580

PATIENT
  Age: 60 Year
  Sex: Female

DRUGS (13)
  1. CARBOPLATIN [Suspect]
     Indication: NON-SMALL CELL LUNG CANCER
     Route: 042
     Dates: start: 20051031, end: 20051031
  2. TAXOTERE [Suspect]
     Indication: NON-SMALL CELL LUNG CANCER
     Route: 042
     Dates: start: 20051031, end: 20051031
  3. FIORICET [Concomitant]
     Indication: HEADACHE
  4. KLONOPIN [Concomitant]
  5. PAMELOR [Concomitant]
  6. NEXIUM [Concomitant]
     Route: 048
  7. NITROGLYCERIN [Concomitant]
  8. ZOCOR [Concomitant]
  9. PLAVIX [Concomitant]
  10. ASPIRIN [Concomitant]
  11. PROVENTIL [Concomitant]
  12. LASIX [Concomitant]
  13. ESTRADERM [Concomitant]

REACTIONS (3)
  - DEHYDRATION [None]
  - RENAL FAILURE ACUTE [None]
  - SYNCOPE [None]
